FAERS Safety Report 7144841-9 (Version None)
Quarter: 2010Q4

REPORT INFORMATION
  Report Type: 
  Country: None (occurrence: None)
  Receive Date: 20101208
  Receipt Date: 20101125
  Transmission Date: 20110411
  Serious: Yes (Hospitalization, Other)
  Sender: FDA-Public Use
  Company Number: CH-ELI_LILLY_AND_COMPANY-CH201011002641

PATIENT
  Age: 28 Year
  Sex: Female

DRUGS (3)
  1. CYMBALTA [Suspect]
     Dosage: 30 MG, DAILY (1/D)
  2. SEROQUEL [Concomitant]
     Dosage: 50 MG, DAILY (1/D)
  3. ZOLPIDEM [Concomitant]
     Dosage: 10 MG, DAILY (1/D)

REACTIONS (5)
  - ABORTION SPONTANEOUS [None]
  - BORDERLINE PERSONALITY DISORDER [None]
  - DEPRESSION [None]
  - DRUG EXPOSURE DURING PREGNANCY [None]
  - SUICIDAL IDEATION [None]
